FAERS Safety Report 17900310 (Version 1)
Quarter: 2020Q2

REPORT INFORMATION
  Report Type: Spontaneous
  Country: US (occurrence: US)
  Receive Date: 20200616
  Receipt Date: 20200616
  Transmission Date: 20200714
  Serious: No
  Sender: FDA-Public Use
  Company Number: US-PFIZER INC-2020232446

PATIENT

DRUGS (1)
  1. ADVIL [Suspect]
     Active Substance: IBUPROFEN
     Indication: HEADACHE
     Dosage: 12 DF (TOOK MORE), UNK

REACTIONS (4)
  - Overdose [Unknown]
  - Abdominal pain upper [Unknown]
  - Drug ineffective [Unknown]
  - Odynophagia [Unknown]
